FAERS Safety Report 17418539 (Version 2)
Quarter: 2020Q3

REPORT INFORMATION
  Report Type: Report from Study
  Country: IE (occurrence: IE)
  Receive Date: 20200214
  Receipt Date: 20200227
  Transmission Date: 20201105
  Serious: Yes (Other)
  Sender: FDA-Public Use
  Company Number: IE-PFIZER INC-2020062238

PATIENT
  Sex: Female
  Weight: 62.1 kg

DRUGS (5)
  1. GABAPENTIN. [Concomitant]
     Active Substance: GABAPENTIN
     Indication: PAIN
     Dosage: 100 MG, 3X/DAY
     Route: 048
  2. BISOPROLOL [Concomitant]
     Active Substance: BISOPROLOL
     Indication: VENTRICULAR TACHYCARDIA
     Dosage: 5 MG, UNK
  3. LEVOTHYROXINE. [Concomitant]
     Active Substance: LEVOTHYROXINE
     Indication: HYPOTHYROIDISM
     Dosage: 25 UG, 1X/DAY
     Route: 048
  4. OXYCONTIN [Concomitant]
     Active Substance: OXYCODONE HYDROCHLORIDE
     Indication: PAIN
     Dosage: 20 MG, 2X/DAY
     Route: 048
  5. TALAZOPARIB. [Suspect]
     Active Substance: TALAZOPARIB
     Dosage: 1 MG, 1X/DAY
     Route: 048
     Dates: start: 20200116, end: 20200214

REACTIONS (1)
  - Renal impairment [Unknown]
